FAERS Safety Report 7973749-1 (Version None)
Quarter: 2011Q4

REPORT INFORMATION
  Report Type: 
  Country: None (occurrence: None)
  Receive Date: 20111213
  Receipt Date: 20111206
  Transmission Date: 20120403
  Serious: Yes (Death)
  Sender: FDA-Public Use
  Company Number: FR-ASTRAZENECA-2011SE52311

PATIENT
  Age: 29854 Day
  Sex: Female

DRUGS (6)
  1. KETAMINE HCL [Suspect]
     Indication: GENERAL ANAESTHESIA
     Route: 030
     Dates: start: 20110816, end: 20110816
  2. KETAMINE HCL [Suspect]
     Route: 030
     Dates: start: 20110816, end: 20110816
  3. SUFENTANIL CITRATE [Suspect]
     Indication: GENERAL ANAESTHESIA
     Route: 042
     Dates: start: 20110816, end: 20110816
  4. NIMBEX [Suspect]
     Indication: GENERAL ANAESTHESIA
     Route: 042
     Dates: start: 20110816, end: 20110816
  5. NAROPIN [Suspect]
     Indication: GENERAL ANAESTHESIA
     Route: 050
     Dates: start: 20110816, end: 20110816
  6. MIDAZOLAM [Suspect]
     Indication: GENERAL ANAESTHESIA
     Route: 042
     Dates: start: 20110816, end: 20110816

REACTIONS (1)
  - ANAPHYLACTIC SHOCK [None]
